FAERS Safety Report 6406880-2 (Version None)
Quarter: 2009Q4

REPORT INFORMATION
  Report Type: 
  Country: None (occurrence: None)
  Receive Date: 20091020
  Receipt Date: 20090922
  Transmission Date: 20100525
  Serious: No
  Sender: FDA-Public Use
  Company Number: IE-ROCHE-649247

PATIENT
  Sex: Male
  Weight: 85.5 kg

DRUGS (8)
  1. TAMIFLU [Suspect]
     Route: 048
     Dates: start: 20060808, end: 20060813
  2. TAMIFLU [Suspect]
     Route: 048
     Dates: start: 20090809
  3. CLOZARIL [Concomitant]
     Dosage: FOR MANY YEARS
     Route: 048
  4. CLOZARIL [Concomitant]
     Dosage: FOR MANY YEARS
     Route: 048
  5. PRIADEL [Concomitant]
     Indication: MOOD SWINGS
     Dosage: FOR MANY YEARS
     Route: 048
  6. CITALOPRAM HYDROBROMIDE [Concomitant]
     Indication: DEPRESSION
     Dosage: FOR MANY YEARS
     Route: 048
  7. SINEMET CR [Concomitant]
     Dosage: 2 1/2 TABLETS , FOR MAY YEARS
     Route: 048
  8. LOSEC [Concomitant]
     Dosage: FOR FEW YEARS,
     Route: 048

REACTIONS (2)
  - DRUG ADMINISTRATION ERROR [None]
  - NO ADVERSE EVENT [None]
